FAERS Safety Report 4294524-8 (Version None)
Quarter: 2004Q1

REPORT INFORMATION
  Report Type: 
  Country: None (occurrence: None)
  Receive Date: 20040211
  Receipt Date: 20040127
  Transmission Date: 20041129
  Serious: Yes (Hospitalization)
  Sender: FDA-Public Use
  Company Number: WAES 0401USA01540

PATIENT
  Age: 73 Year
  Sex: Female

DRUGS (8)
  1. VIOXX [Suspect]
     Indication: LOCALISED OSTEOARTHRITIS
     Dosage: 25 MG/DAILY
     Route: 048
     Dates: start: 20031007, end: 20040108
  2. FOSAMAX [Concomitant]
  3. ALFACALCIDOL [Concomitant]
  4. APRINDINE HYDROCHLORIDE [Concomitant]
  5. CALCIUM [Concomitant]
  6. NITRAZEPAM [Concomitant]
  7. PRAVASTATIN SODIUM [Concomitant]
  8. SPIRONOLACTONE [Concomitant]

REACTIONS (5)
  - ANGINA PECTORIS [None]
  - AORTIC VALVE STENOSIS [None]
  - CARDIAC FAILURE CHRONIC [None]
  - DEHYDRATION [None]
  - RENAL IMPAIRMENT [None]
